FAERS Safety Report 19181366 (Version 3)
Quarter: 2021Q2

REPORT INFORMATION
  Report Type: Report from Study
  Country: US (occurrence: US)
  Receive Date: 20210426
  Receipt Date: 20210611
  Transmission Date: 20210717
  Serious: Yes (Other)
  Sender: FDA-Public Use
  Company Number: US-CELGENEUS-USA-20210404743

PATIENT
  Age: 81 Year
  Sex: Female
  Weight: 48 kg

DRUGS (14)
  1. VENETOCLAX. [Suspect]
     Active Substance: VENETOCLAX
     Dosage: 400 MG X 1 X 1 DAYS
     Route: 048
     Dates: start: 20210421, end: 20210426
  2. LIDOCAINE?PRILOCAINE (EMLA) 2.5% CREAM [Concomitant]
     Indication: PAIN
     Dosage: 25 G X 1 X 1 DAYS
     Route: 061
     Dates: start: 20210104
  3. CC?90009 [Suspect]
     Active Substance: INVESTIGATIONAL PRODUCT
     Indication: ACUTE MYELOID LEUKAEMIA
     Dosage: 3 MG X 1 X 1 DAYS
     Route: 042
     Dates: start: 20210315, end: 20210315
  4. VENETOCLAX. [Suspect]
     Active Substance: VENETOCLAX
     Indication: ACUTE MYELOID LEUKAEMIA
     Dosage: 100 MG X 1 X 1 DAYS
     Route: 048
     Dates: start: 20210312, end: 20210312
  5. CALCIUM CARBONATE (OSCAL) [Concomitant]
     Indication: MINERAL SUPPLEMENTATION
     Dosage: 1250 MG X 3 X 1 DAYS
     Route: 048
     Dates: start: 20210312
  6. VORICONAZOLE (VFEND) [Concomitant]
     Indication: PROPHYLAXIS
     Dosage: 200 MG X 1 X 12 HOURS
     Route: 048
     Dates: start: 20210501
  7. CC?90009 [Suspect]
     Active Substance: INVESTIGATIONAL PRODUCT
     Route: 042
     Dates: start: 20210415, end: 20210415
  8. CC?90009 [Suspect]
     Active Substance: INVESTIGATIONAL PRODUCT
     Dosage: 3 MG X 1 X 1 DAYS
     Route: 042
     Dates: start: 20210422, end: 20210422
  9. CC?90009 [Suspect]
     Active Substance: INVESTIGATIONAL PRODUCT
     Dosage: 3 MG X 1 X 1 DAYS
     Route: 042
     Dates: start: 20210414, end: 20210414
  10. CC?90009 [Suspect]
     Active Substance: INVESTIGATIONAL PRODUCT
     Dosage: 3 MG X 1 X 1 DAYS
     Route: 042
     Dates: start: 20210421, end: 20210421
  11. AZACITIDINE. [Suspect]
     Active Substance: AZACITIDINE
     Indication: ACUTE MYELOID LEUKAEMIA
     Dosage: 111 MG X 1 X 1 DAYS
     Route: 058
     Dates: start: 20210312, end: 20210312
  12. VENETOCLAX. [Suspect]
     Active Substance: VENETOCLAX
     Dosage: 400 MG X 1 X 1 DAYS
     Route: 048
     Dates: start: 20210412
  13. CHOLECALCIFEROL (VITAMIN D) [Concomitant]
     Indication: PROPHYLAXIS
     Dosage: 1000 IU X 1 X 1 DAYS
     Route: 048
     Dates: start: 20210312
  14. LEVAQUIN [Concomitant]
     Active Substance: LEVOFLOXACIN
     Indication: PROPHYLAXIS
     Dosage: 500 MG X 1 X 1 DAYS
     Route: 048
     Dates: start: 20210308

REACTIONS (1)
  - Colitis [Recovered/Resolved]

NARRATIVE: CASE EVENT DATE: 20210418
